FAERS Safety Report 8385044-X (Version None)
Quarter: 2012Q2

REPORT INFORMATION
  Report Type: 
  Country: None (occurrence: None)
  Receive Date: 20120524
  Receipt Date: 20120521
  Transmission Date: 20120825
  Serious: Yes (Hospitalization, Disabling, Other)
  Sender: FDA-Public Use
  Company Number: US-MERCK-1201USA00338

PATIENT
  Age: 61 Year
  Sex: Female
  Weight: 77 kg

DRUGS (3)
  1. FOSAMAX [Suspect]
     Route: 048
     Dates: start: 20020101, end: 20060101
  2. FOSAMAX [Suspect]
     Indication: OSTEOPOROSIS
     Route: 048
     Dates: start: 19970101, end: 20100801
  3. MIACALCIN [Concomitant]
     Indication: OSTEOPOROSIS
     Route: 065
     Dates: start: 19990301

REACTIONS (86)
  - FLATULENCE [None]
  - SPINAL OSTEOARTHRITIS [None]
  - PRESBYACUSIS [None]
  - FATIGUE [None]
  - BACK PAIN [None]
  - IRIS TRANSILLUMINATION DEFECT [None]
  - HYPERTENSION [None]
  - ECCHYMOSIS [None]
  - CERUMEN IMPACTION [None]
  - JAW DISORDER [None]
  - INFREQUENT BOWEL MOVEMENTS [None]
  - GASTRIC DISORDER [None]
  - SPINAL COMPRESSION FRACTURE [None]
  - DRUG HYPERSENSITIVITY [None]
  - BARRETT'S OESOPHAGUS [None]
  - ADVERSE EVENT [None]
  - CONSTIPATION [None]
  - GASTROOESOPHAGEAL REFLUX DISEASE [None]
  - SINUSITIS [None]
  - ACQUIRED OESOPHAGEAL WEB [None]
  - POLLAKIURIA [None]
  - ULNAR NEURITIS [None]
  - TOOTH FRACTURE [None]
  - TOOTH EXTRACTION [None]
  - LYMPHADENOPATHY [None]
  - PROCEDURAL HAEMORRHAGE [None]
  - DYSPHAGIA [None]
  - DRUG INEFFECTIVE [None]
  - CHOLECYSTITIS [None]
  - TENDON RUPTURE [None]
  - GASTRIC MUCOSA ERYTHEMA [None]
  - SINUS DISORDER [None]
  - TINNITUS [None]
  - OEDEMA PERIPHERAL [None]
  - NOCTURIA [None]
  - ASTHENIA [None]
  - ANAEMIA [None]
  - JOINT INJURY [None]
  - FEMUR FRACTURE [None]
  - PNEUMONIA [None]
  - CATARACT [None]
  - STRESS URINARY INCONTINENCE [None]
  - DYSPEPSIA [None]
  - WRIST FRACTURE [None]
  - VASCULAR INSUFFICIENCY [None]
  - URINARY TRACT INFECTION [None]
  - HYPOAESTHESIA [None]
  - PALPITATIONS [None]
  - ARTHRITIS [None]
  - RIB FRACTURE [None]
  - DIVERTICULUM INTESTINAL [None]
  - OSTEOARTHRITIS [None]
  - GASTRIC POLYPS [None]
  - OBESITY [None]
  - PERIODONTITIS [None]
  - INGUINAL HERNIA [None]
  - KYPHOSIS [None]
  - ARTHROPATHY [None]
  - INFECTION [None]
  - HIATUS HERNIA [None]
  - ERUCTATION [None]
  - EMPHYSEMA [None]
  - DIVERTICULUM [None]
  - DENTAL CARIES [None]
  - GASTRITIS [None]
  - FOOT FRACTURE [None]
  - OESOPHAGEAL STENOSIS [None]
  - TOOTH DISORDER [None]
  - LUMBAR SPINE FLATTENING [None]
  - PAIN IN EXTREMITY [None]
  - LIPOGRANULOMA [None]
  - FIBROMA [None]
  - ASTHMA [None]
  - OSTEONECROSIS OF JAW [None]
  - ATRIAL FIBRILLATION [None]
  - FALL [None]
  - BODY HEIGHT DECREASED [None]
  - SEASONAL ALLERGY [None]
  - OESOPHAGEAL DISORDER [None]
  - PIGMENT DISPERSION SYNDROME [None]
  - BRONCHITIS [None]
  - PAIN [None]
  - ABDOMINAL HERNIA [None]
  - CHOLELITHIASIS [None]
  - INTERVERTEBRAL DISC DEGENERATION [None]
  - CHRONIC OBSTRUCTIVE PULMONARY DISEASE [None]
